FAERS Safety Report 6803082-2 (Version None)
Quarter: 2010Q2

REPORT INFORMATION
  Report Type: 
  Country: None (occurrence: None)
  Receive Date: 20100628
  Receipt Date: 20100618
  Transmission Date: 20101027
  Serious: Yes (Death, Hospitalization, Other)
  Sender: FDA-Public Use
  Company Number: B0660109A

PATIENT
  Age: 81 Year
  Sex: Male

DRUGS (3)
  1. CLOBETASOL PROPIONATE [Suspect]
     Indication: PEMPHIGOID
     Dosage: 900G PER DAY
     Route: 061
  2. INSULIN [Concomitant]
     Indication: DIABETES MELLITUS
  3. CELLCEPT [Concomitant]

REACTIONS (6)
  - ERYSIPELAS [None]
  - HAEMODYNAMIC INSTABILITY [None]
  - LUNG INFECTION [None]
  - NECROTISING FASCIITIS [None]
  - RESPIRATORY DISORDER [None]
  - SKIN INFECTION [None]
